FAERS Safety Report 7796869-3 (Version None)
Quarter: 2011Q4

REPORT INFORMATION
  Report Type: 
  Country: None (occurrence: None)
  Receive Date: 20111003
  Receipt Date: 20110922
  Transmission Date: 20120403
  Serious: Yes (Hospitalization)
  Sender: FDA-Public Use
  Company Number: 201111257

PATIENT
  Sex: Female
  Weight: 56.6996 kg

DRUGS (16)
  1. LIORESAL [Suspect]
     Indication: MUSCLE SPASTICITY
     Dosage: MCG, DAILY, INTRATHECAL
     Route: 037
  2. COPAXANE [Concomitant]
  3. PROZAC [Concomitant]
  4. AMBIEN [Concomitant]
  5. MULTI-VITAMIN [Concomitant]
  6. BACTROBAN [Concomitant]
  7. VIACTIVE [Concomitant]
  8. DITROPAN XL [Concomitant]
  9. BACLOFEN [Concomitant]
  10. MOTRIN [Concomitant]
  11. MACRODANTIN [Concomitant]
  12. PERCOCET [Concomitant]
  13. CIMARA [Concomitant]
  14. ZANAFLEX [Concomitant]
  15. TETRACYCLINE [Concomitant]
  16. DYAZIDE [Concomitant]

REACTIONS (9)
  - ACTIVITIES OF DAILY LIVING IMPAIRED [None]
  - IMPLANT SITE DISCHARGE [None]
  - INFECTION [None]
  - CONDITION AGGRAVATED [None]
  - ABASIA [None]
  - OPEN WOUND [None]
  - ASTHENIA [None]
  - NAUSEA [None]
  - MUSCLE SPASTICITY [None]
